FAERS Safety Report 10758345 (Version 1)
Quarter: 2015Q1

REPORT INFORMATION
  Report Type: Spontaneous
  Country: US (occurrence: None)
  Receive Date: 20150202
  Receipt Date: 20150202
  Transmission Date: 20150721
  Serious: Yes (Life-Threatening, Hospitalization, Disabling, Other)
  Sender: FDA-Public Use
  Company Number: None

PATIENT
  Age: 77 Year
  Sex: Female
  Weight: 82 kg

DRUGS (1)
  1. LEXISCAN [Suspect]
     Active Substance: REGADENOSON

REACTIONS (10)
  - Deep vein thrombosis [None]
  - Swelling [None]
  - Injection site mass [None]
  - Pain [None]
  - Immobile [None]
  - Injection site discolouration [None]
  - Joint swelling [None]
  - Mobility decreased [None]
  - Cellulitis [None]
  - Asthenia [None]

NARRATIVE: CASE EVENT DATE: 20141212
